FAERS Safety Report 10219122 (Version 1)
Quarter: 2014Q2

REPORT INFORMATION
  Report Type: Spontaneous
  Country: US (occurrence: None)
  Receive Date: 20140604
  Receipt Date: 20140604
  Transmission Date: 20141212
  Serious: Yes (Hospitalization)
  Sender: FDA-Public Use
  Company Number: None

PATIENT
  Age: 36 Year
  Sex: Male
  Weight: 84 kg

DRUGS (1)
  1. CIPROFLOXACIN [Suspect]
     Indication: URINARY TRACT INFECTION
     Dosage: 2 DOSES TWICE DAILY TAKEN BY MOUTH
     Route: 048

REACTIONS (9)
  - Pain in extremity [None]
  - Abdominal pain upper [None]
  - Chest pain [None]
  - Pain in extremity [None]
  - Arthralgia [None]
  - Abasia [None]
  - Nausea [None]
  - Tendon pain [None]
  - Arthralgia [None]
